FAERS Safety Report 9746704 (Version 2)
Quarter: 2013Q4

REPORT INFORMATION
  Report Type: Spontaneous
  Country: FR (occurrence: FR)
  Receive Date: 20131211
  Receipt Date: 20131217
  Transmission Date: 20140711
  Serious: Yes (Hospitalization)
  Sender: FDA-Public Use
  Company Number: FR-B.I. PHARMACEUTICALS,INC./RIDGEFIELD-2013-BI-41534BY

PATIENT
  Age: 80 Year
  Sex: Female

DRUGS (2)
  1. TELMISARTAN [Suspect]
     Dosage: 40 MG
     Route: 065
  2. VERAPAMIL (VERAPAMIL) [Concomitant]

REACTIONS (1)
  - Intestinal obstruction [Unknown]
